FAERS Safety Report 19134597 (Version 1)
Quarter: 2021Q2

REPORT INFORMATION
  Report Type: Spontaneous
  Country: US (occurrence: US)
  Receive Date: 20210414
  Receipt Date: 20210414
  Transmission Date: 20210717
  Serious: Yes (Hospitalization)
  Sender: FDA-Public Use
  Company Number: US-AMNEAL PHARMACEUTICALS-2021-AMRX-01224

PATIENT
  Age: 50 Year
  Sex: Female
  Weight: 88 kg

DRUGS (4)
  1. ELAGOLIX [Suspect]
     Active Substance: ELAGOLIX
     Indication: UTERINE LEIOMYOMA
     Dosage: 300 MILLIGRAM, 2 /DAY (AM AND PM DOSE)
     Route: 048
     Dates: start: 20190326
  2. IBUPROFEN. [Concomitant]
     Active Substance: IBUPROFEN
     Indication: PELVIC DISCOMFORT
     Dosage: 400 MG, AS NEEDED
     Route: 048
     Dates: start: 2003
  3. FERROUS SULFATE. [Concomitant]
     Active Substance: FERROUS SULFATE
     Indication: ANAEMIA
     Dosage: 325 MILLIGRAM, BID
     Route: 048
     Dates: start: 2016
  4. ACTIVELLA [Suspect]
     Active Substance: ESTRADIOL\NORETHINDRONE ACETATE
     Indication: UTERINE LEIOMYOMA
     Dosage: 1 DOSAGE FORM, 1 /DAY
     Route: 048
     Dates: start: 20190326

REACTIONS (1)
  - Pneumonia [Recovered/Resolved]

NARRATIVE: CASE EVENT DATE: 20190605
